FAERS Safety Report 4807539-5 (Version None)
Quarter: 2005Q4

REPORT INFORMATION
  Report Type: 
  Country: None (occurrence: None)
  Receive Date: 20051024
  Receipt Date: 20050218
  Transmission Date: 20060501
  Serious: Yes (Death)
  Sender: FDA-Public Use
  Company Number: FR-ROCHE-396293

PATIENT
  Age: 55 Year
  Sex: Male
  Weight: 44 kg

DRUGS (5)
  1. FUZEON [Suspect]
     Indication: HIV INFECTION
     Route: 058
     Dates: start: 20041109, end: 20041224
  2. ROVALCYTE [Suspect]
     Indication: CYTOMEGALOVIRUS INFECTION
     Route: 048
     Dates: start: 20041019, end: 20041224
  3. TIPRANAVIR [Suspect]
     Indication: HIV INFECTION
     Dosage: REPORTED AS TIPRANAVIR ATU.
     Route: 048
     Dates: start: 20041109, end: 20041224
  4. VIREAD [Suspect]
     Indication: HIV INFECTION
     Route: 048
     Dates: start: 20041109, end: 20041224
  5. TRIZIVIR [Suspect]
     Indication: HIV INFECTION
     Route: 048
     Dates: start: 20041109, end: 20041224

REACTIONS (1)
  - INTERSTITIAL LUNG DISEASE [None]
